FAERS Safety Report 12312654 (Version 1)
Quarter: 2016Q2

REPORT INFORMATION
  Report Type: Spontaneous
  Country: US (occurrence: US)
  Receive Date: 20160428
  Receipt Date: 20160428
  Transmission Date: 20160815
  Serious: Yes (Other)
  Sender: FDA-Public Use
  Company Number: US-AMGEN-USASP2016051914

PATIENT
  Age: 58 Year
  Sex: Female
  Weight: 55.34 kg

DRUGS (12)
  1. ALLOPURINOL. [Concomitant]
     Active Substance: ALLOPURINOL
     Indication: BLOOD URIC ACID
     Dosage: 100 MG, QD
     Route: 065
     Dates: start: 201205
  2. SYNTHROID [Concomitant]
     Active Substance: LEVOTHYROXINE SODIUM
     Indication: THYROID DISORDER
     Dosage: 88 MG, QD
     Route: 065
     Dates: start: 201203
  3. ATORVASTATIN [Concomitant]
     Active Substance: ATORVASTATIN
     Indication: DYSLIPIDAEMIA
     Dosage: 20 MG, QD
     Route: 065
     Dates: start: 201601, end: 201603
  4. PREDNISONE. [Concomitant]
     Active Substance: PREDNISONE
     Indication: RHEUMATOID ARTHRITIS
     Dosage: 4 MG, QD
     Route: 065
     Dates: start: 201110
  5. PROLIA [Suspect]
     Active Substance: DENOSUMAB
     Indication: OSTEOPOROSIS
     Dosage: UNK UNK, Q6MO
     Route: 065
     Dates: start: 20151217
  6. VITAMIN D [Concomitant]
     Active Substance: CHOLECALCIFEROL
     Dosage: UNK
     Route: 065
  7. METOPROLOL. [Concomitant]
     Active Substance: METOPROLOL
     Indication: BLOOD DISORDER
     Dosage: 50 MG, QD
     Route: 065
     Dates: start: 201203
  8. FOLIC ACID. [Concomitant]
     Active Substance: FOLIC ACID
     Indication: RHEUMATOID ARTHRITIS
     Dosage: 400 MG, QD
     Route: 065
     Dates: start: 200911
  9. XELJANZ [Suspect]
     Active Substance: TOFACITINIB CITRATE
     Indication: PRODUCT USED FOR UNKNOWN INDICATION
     Dosage: 5 MG, BID
     Route: 065
     Dates: start: 20160401
  10. DIGOXIN. [Concomitant]
     Active Substance: DIGOXIN
     Indication: ATRIAL FIBRILLATION
     Dosage: 125 MG, QD
     Route: 065
     Dates: start: 201112
  11. WARFARIN [Concomitant]
     Active Substance: WARFARIN
     Indication: BLOOD DISORDER
     Dosage: 2.5 MG, QD
     Route: 065
     Dates: start: 201109
  12. VICODIN [Concomitant]
     Active Substance: ACETAMINOPHEN\HYDROCODONE BITARTRATE
     Indication: PAIN
     Dosage: UNK UNK, AS NECESSARY
     Route: 065

REACTIONS (7)
  - Blood cholesterol abnormal [Unknown]
  - Fatigue [Not Recovered/Not Resolved]
  - Diverticulitis [Unknown]
  - Herpes zoster [Unknown]
  - White blood cell count increased [Unknown]
  - Decreased appetite [Not Recovered/Not Resolved]
  - Asthenia [Not Recovered/Not Resolved]

NARRATIVE: CASE EVENT DATE: 201601
